FAERS Safety Report 7254089-5 (Version None)
Quarter: 2011Q1

REPORT INFORMATION
  Report Type: 
  Country: None (occurrence: None)
  Receive Date: 20110129
  Receipt Date: 20100422
  Transmission Date: 20110831
  Serious: No
  Sender: FDA-Public Use
  Company Number: US-ABBOTT-10P-163-0640229-00

PATIENT
  Sex: Male
  Weight: 97.61 kg

DRUGS (7)
  1. MORPHINE [Concomitant]
     Dosage: PUMP
  2. HUMIRA [Suspect]
     Indication: RHEUMATOID ARTHRITIS
     Dates: start: 20070401
  3. HUMIRA [Suspect]
     Dates: start: 20080401
  4. FORTEO [Concomitant]
  5. BACLOFEN [Concomitant]
  6. FENTANYL [Concomitant]
     Dosage: PATCH
  7. VICODIN [Concomitant]

REACTIONS (12)
  - INJECTION SITE VESICLES [None]
  - INJECTION SITE HAEMATOMA [None]
  - SKIN EXFOLIATION [None]
  - DRY SKIN [None]
  - RASH PAPULAR [None]
  - SKIN ATROPHY [None]
  - ARTHRALGIA [None]
  - SCAB [None]
  - RASH ERYTHEMATOUS [None]
  - SCAR [None]
  - INJECTION SITE PAIN [None]
  - DRUG INEFFECTIVE [None]
